FAERS Safety Report 21775918 (Version 3)
Quarter: 2023Q1

REPORT INFORMATION
  Report Type: Spontaneous
  Country: US (occurrence: US)
  Receive Date: 20221226
  Receipt Date: 20230203
  Transmission Date: 20230417
  Serious: Yes (Hospitalization, Other)
  Sender: FDA-Public Use
  Company Number: US-009507513-2212USA007700

PATIENT
  Age: 66 Year
  Sex: Female

DRUGS (4)
  1. KEYTRUDA [Suspect]
     Active Substance: PEMBROLIZUMAB
     Indication: Non-small cell lung cancer
     Dosage: 200 MILLIGRAM, Q3W
     Route: 042
     Dates: start: 20221103, end: 20221103
  2. KEYTRUDA [Suspect]
     Active Substance: PEMBROLIZUMAB
     Dosage: 200 MILLIGRAM, Q3W
     Route: 042
     Dates: start: 20221122, end: 20221122
  3. ONC-392 [Suspect]
     Active Substance: ONC-392
     Indication: Non-small cell lung cancer
     Dosage: 3 MILLIGRAM/KILOGRAM, Q3W
     Route: 042
     Dates: start: 20221103, end: 20221103
  4. ONC-392 [Suspect]
     Active Substance: ONC-392
     Dosage: 3 MILLIGRAM/KILOGRAM, Q3W,CYCLE 2, DAY 1
     Route: 042
     Dates: start: 20221122, end: 20221122

REACTIONS (5)
  - Hyponatraemia [Recovering/Resolving]
  - Hypertransaminasaemia [Recovered/Resolved]
  - Hepatitis [Unknown]
  - Hypophysitis [Unknown]
  - Product use issue [Unknown]

NARRATIVE: CASE EVENT DATE: 20220101
